FAERS Safety Report 20195505 (Version 1)
Quarter: 2021Q4

REPORT INFORMATION
  Report Type: Spontaneous
  Country: PL (occurrence: PL)
  Receive Date: 20211216
  Receipt Date: 20211216
  Transmission Date: 20220303
  Serious: Yes (Hospitalization, Other)
  Sender: FDA-Public Use
  Company Number: PL-002147023-NVSC2021PL246598

PATIENT
  Age: 61 Year
  Sex: Male
  Weight: 100 kg

DRUGS (24)
  1. ROSUVASTATIN [Suspect]
     Active Substance: ROSUVASTATIN
     Indication: Product used for unknown indication
     Dosage: 30 MG, QD, (1 X 30 MG)
     Route: 065
     Dates: start: 201910
  2. METOPROLOL [Suspect]
     Active Substance: METOPROLOL
     Indication: Product used for unknown indication
     Dosage: 50 MG, QD, (1 X 50 MG)
     Route: 065
     Dates: start: 201707
  3. METOPROLOL [Suspect]
     Active Substance: METOPROLOL
     Dosage: 47.5 MG, QD, (1 X 47.5 MG)
     Route: 065
     Dates: start: 201808
  4. METOPROLOL [Suspect]
     Active Substance: METOPROLOL
     Dosage: 47.5 MG, QD, (1 X 47.5 MG)
     Route: 065
     Dates: start: 201809
  5. VALSARTAN [Suspect]
     Active Substance: VALSARTAN
     Indication: Product used for unknown indication
     Dosage: 60 MG, (1 X 60 MG)
     Route: 065
     Dates: start: 201707
  6. ATORVASTATIN [Suspect]
     Active Substance: ATORVASTATIN
     Indication: Product used for unknown indication
     Dosage: 20 MG, QD, (1 X 20 MG)
     Route: 065
     Dates: start: 201707, end: 201910
  7. ATORVASTATIN [Suspect]
     Active Substance: ATORVASTATIN
     Dosage: 20 MG, QD, (1 X 20 MG)
     Route: 065
     Dates: start: 201808
  8. ATORVASTATIN [Suspect]
     Active Substance: ATORVASTATIN
     Dosage: 20 MG, QD, (1 X 20 MG)
     Route: 065
     Dates: start: 201809
  9. RIVAROXABAN [Suspect]
     Active Substance: RIVAROXABAN
     Indication: Product used for unknown indication
     Dosage: 20 MILLIGRAM, QD,20 MG, QD, (1 X 20 MG)
     Route: 065
     Dates: start: 201707, end: 201808
  10. APIXABAN [Suspect]
     Active Substance: APIXABAN
     Indication: Product used for unknown indication
     Dosage: 10 MILLIGRAM, QD,5 MG, BID, (2 X 5 MG)
     Route: 065
     Dates: start: 201809
  11. PANTOPRAZOLE SODIUM [Suspect]
     Active Substance: PANTOPRAZOLE SODIUM
     Indication: Product used for unknown indication
     Dosage: 20 MG, QD, (1 X 20 MG)
     Route: 065
     Dates: start: 201707
  12. PANTOPRAZOLE SODIUM [Suspect]
     Active Substance: PANTOPRAZOLE SODIUM
     Dosage: 20 MG, QD, (1 X 20 MG)
     Route: 065
     Dates: start: 201809
  13. EPLERENONE [Suspect]
     Active Substance: EPLERENONE
     Indication: Product used for unknown indication
     Dosage: 50 MG, (1 X 50 MG)
     Route: 065
     Dates: start: 201809
  14. EPLERENONE [Suspect]
     Active Substance: EPLERENONE
     Dosage: 50 MG, (1 X 50 MG)
     Route: 065
     Dates: start: 201707, end: 201808
  15. WARFARIN [Suspect]
     Active Substance: WARFARIN
     Indication: Product used for unknown indication
     Dosage: UNK, (ACCORDING TO INR)
     Route: 065
     Dates: start: 201808
  16. TORSEMIDE [Suspect]
     Active Substance: TORSEMIDE
     Indication: Product used for unknown indication
     Dosage: UNK,20-10-0 MG, (DOSE WAS GENTLY INCREASED)
     Route: 065
     Dates: start: 201808
  17. TORSEMIDE [Suspect]
     Active Substance: TORSEMIDE
     Dosage: 20 MILLIGRAM, QD,10 MG, BID, (2 X 10 MG)
     Route: 065
     Dates: start: 201707
  18. TORSEMIDE [Suspect]
     Active Substance: TORSEMIDE
     Dosage: UNK, 10-10-0 MG
     Route: 065
     Dates: start: 201809
  19. SACUBITRIL\VALSARTAN [Suspect]
     Active Substance: SACUBITRIL\VALSARTAN
     Indication: Product used for unknown indication
     Dosage: 200 MILLIGRAM, QD(100 MG, BID, (2 X 49/51 MG))
     Route: 065
     Dates: start: 201711, end: 201808
  20. SACUBITRIL\VALSARTAN [Suspect]
     Active Substance: SACUBITRIL\VALSARTAN
     Dosage: 400 MILLIGRAM, QD,200 MG, BID, (2 X 97/103 MG)
     Route: 065
     Dates: start: 201901
  21. SACUBITRIL\VALSARTAN [Suspect]
     Active Substance: SACUBITRIL\VALSARTAN
     Dosage: UNK
     Route: 065
     Dates: start: 201808
  22. SACUBITRIL\VALSARTAN [Suspect]
     Active Substance: SACUBITRIL\VALSARTAN
     Dosage: 400 MILLIGRAM, QD,200 MG, BID, (2 X 97/103 MG)
     Route: 065
     Dates: start: 201712
  23. SACUBITRIL\VALSARTAN [Suspect]
     Active Substance: SACUBITRIL\VALSARTAN
     Dosage: 200 MILLIGRAM, QD,100 MG, BID, (2 X 49/51 MG)
     Route: 065
     Dates: start: 201809
  24. POTASSIUM [Suspect]
     Active Substance: POTASSIUM
     Indication: Product used for unknown indication
     Dosage: UNK
     Route: 065
     Dates: start: 201808

REACTIONS (8)
  - Atrial fibrillation [Unknown]
  - Cardiac failure congestive [Unknown]
  - Weight increased [Unknown]
  - Oedema peripheral [Unknown]
  - Heart rate increased [Unknown]
  - Diarrhoea [Unknown]
  - Product dose omission issue [Unknown]
  - Inappropriate schedule of product administration [Unknown]
